FAERS Safety Report 14026474 (Version 1)
Quarter: 2017Q3

REPORT INFORMATION
  Report Type: Spontaneous
  Country: US (occurrence: US)
  Receive Date: 20170929
  Receipt Date: 20170929
  Transmission Date: 20171128
  Serious: Yes (Other)
  Sender: FDA-Public Use
  Company Number: US-AMGEN-USASP2017146234

PATIENT
  Sex: Female

DRUGS (1)
  1. ENBREL [Suspect]
     Active Substance: ETANERCEPT
     Indication: RHEUMATOID ARTHRITIS
     Dosage: 50 MG, 2 TIMES/WK
     Route: 058

REACTIONS (7)
  - Feeding disorder [Unknown]
  - Bacterial infection [Unknown]
  - Dry mouth [Unknown]
  - Pharyngitis [Unknown]
  - Lyme disease [Unknown]
  - Oral infection [Unknown]
  - Viral infection [Unknown]
